FAERS Safety Report 20526654 (Version 12)
Quarter: 2024Q1

REPORT INFORMATION
  Report Type: Spontaneous
  Country: JP (occurrence: JP)
  Receive Date: 20220228
  Receipt Date: 20240314
  Transmission Date: 20240409
  Serious: Yes (Other)
  Sender: FDA-Public Use
  Company Number: JP-BRISTOL-MYERS SQUIBB COMPANY-BMS-2021-078609

PATIENT
  Age: 72 Year
  Sex: Male
  Weight: 63 kg

DRUGS (13)
  1. YERVOY [Suspect]
     Active Substance: IPILIMUMAB
     Indication: Non-small cell lung cancer recurrent
     Dosage: 60MG
     Route: 041
     Dates: start: 20210323
  2. YERVOY [Suspect]
     Active Substance: IPILIMUMAB
     Dosage: THE NUMBER OF ADMINISTERED COURSES: 5
     Route: 041
     Dates: start: 2021
  3. OPDIVO [Suspect]
     Active Substance: NIVOLUMAB
     Indication: Non-small cell lung cancer recurrent
     Dosage: 360 MILLIGRAM
     Route: 041
     Dates: start: 20210323
  4. OPDIVO [Suspect]
     Active Substance: NIVOLUMAB
     Dosage: THE NUMBER OF ADMINISTERED COURSES: 5
     Route: 041
     Dates: start: 2021
  5. OPDIVO [Suspect]
     Active Substance: NIVOLUMAB
     Dosage: ON AN UNSPECIFIED DATE,22 COURSES OF OPDIVO THERAPY HAD BEEN PERFORMED.
     Route: 041
  6. ALIMTA [Concomitant]
     Active Substance: PEMETREXED DISODIUM
     Indication: Non-small cell lung cancer recurrent
     Dosage: 840 MG
     Dates: start: 20210323, end: 202104
  7. ALIMTA [Concomitant]
     Active Substance: PEMETREXED DISODIUM
  8. MAGNESIUM OXIDE [Concomitant]
     Active Substance: MAGNESIUM OXIDE
     Indication: Product used for unknown indication
     Dosage: UNK
  9. MAGNESIUM OXIDE [Concomitant]
     Active Substance: MAGNESIUM OXIDE
  10. CARBOPLATIN [Concomitant]
     Active Substance: CARBOPLATIN
     Indication: Non-small cell lung cancer recurrent
     Dosage: 500 MILLIGRAM
     Dates: start: 20210323, end: 202104
  11. AMOXICILLIN\CLARITHROMYCIN\ESOMEPRAZOLE [Concomitant]
     Active Substance: AMOXICILLIN\CLARITHROMYCIN\ESOMEPRAZOLE
     Indication: Product used for unknown indication
     Dosage: UNK
  12. PANVITAN BABY [Concomitant]
     Indication: Product used for unknown indication
     Dosage: UNK
  13. METOCLOPRAMIDE [Concomitant]
     Active Substance: METOCLOPRAMIDE
     Indication: Product used for unknown indication

REACTIONS (3)
  - Interstitial lung disease [Recovered/Resolved]
  - Erythema [Recovered/Resolved]
  - Hypothalamo-pituitary disorder [Recovering/Resolving]

NARRATIVE: CASE EVENT DATE: 20210601
